FAERS Safety Report 18276069 (Version 1)
Quarter: 2020Q3

REPORT INFORMATION
  Report Type: Spontaneous
  Country: US (occurrence: US)
  Receive Date: 20200916
  Receipt Date: 20200916
  Transmission Date: 20201103
  Serious: No
  Sender: FDA-Public Use
  Company Number: US-AMGEN-USASP2020148266

PATIENT
  Age: 65 Year
  Sex: Female

DRUGS (5)
  1. PROLIA [Suspect]
     Active Substance: DENOSUMAB
     Indication: OSTEOPOROSIS POSTMENOPAUSAL
  2. NEURONTIN [Concomitant]
     Active Substance: GABAPENTIN
  3. PROLIA [Suspect]
     Active Substance: DENOSUMAB
     Indication: OSTEOPENIA
     Dosage: UNK
     Route: 065
     Dates: start: 20200731
  4. LIPITOR [Concomitant]
     Active Substance: ATORVASTATIN CALCIUM
  5. CELEBREX [Concomitant]
     Active Substance: CELECOXIB

REACTIONS (2)
  - Headache [Unknown]
  - Sinus pain [Unknown]

NARRATIVE: CASE EVENT DATE: 2020
